FAERS Safety Report 24669822 (Version 2)
Quarter: 2024Q4

REPORT INFORMATION
  Report Type: Spontaneous
  Country: ES (occurrence: ES)
  Receive Date: 20241127
  Receipt Date: 20241220
  Transmission Date: 20250114
  Serious: Yes (Life-Threatening)
  Sender: TEVA
  Company Number: None

PATIENT
  Age: 46 Year
  Sex: Female

DRUGS (4)
  1. OMEPRAZOLE [Suspect]
     Active Substance: OMEPRAZOLE
     Indication: Product used for unknown indication
     Dosage: 20.0 MG A-DE: OMEPRAZOLE (2141A)
     Route: 048
     Dates: start: 20241107
  2. FLATORIL [Concomitant]
     Indication: Flatulence
     Dosage: 0.5 MG A-DECOCE: 500 MICROGRAMS/200 MG, 45 CAPSULES
     Route: 048
     Dates: start: 20241030
  3. DEXKETOPROFENO PENSA [Concomitant]
     Indication: Malaise
     Dosage: 25.0 MG DECOCE: EFG, 20 SACHETS
     Route: 048
     Dates: start: 20231023
  4. MAXALT [Concomitant]
     Active Substance: RIZATRIPTAN BENZOATE
     Indication: Malaise
     Dosage: MAXALT MAX, 6 LYOPHILIZED
     Route: 048
     Dates: start: 20231024

REACTIONS (3)
  - Urticaria [Recovering/Resolving]
  - Dyspnoea [Recovering/Resolving]
  - Tongue oedema [Recovering/Resolving]

NARRATIVE: CASE EVENT DATE: 20241107
